FAERS Safety Report 8769426 (Version 2)
Quarter: 2012Q4

REPORT INFORMATION
  Report Type: 
  Country: US (occurrence: US)
  Receive Date: 20120905
  Receipt Date: 20120905
  Transmission Date: 20130627
  Serious: No
  Sender: FDA-Public Use
  Company Number: US-MYLANLABS-2012S1001670

PATIENT
  Age: 59 Year
  Sex: Female
  Weight: 136.08 kg

DRUGS (4)
  1. SPIRONOLACTONE [Suspect]
     Indication: HYPERTENSION
     Route: 048
     Dates: start: 2008
  2. HCTZ [Suspect]
     Indication: HYPERTENSION
     Dates: start: 2000, end: 2000
  3. ALLEGRA D [Concomitant]
     Indication: MULTIPLE ALLERGIES
  4. VITAMINS [Concomitant]
     Indication: VITAMIN SUPPLEMENTATION
     Dosage: And various supplements

REACTIONS (2)
  - Blood pressure fluctuation [Not Recovered/Not Resolved]
  - Oedema [Not Recovered/Not Resolved]
